FAERS Safety Report 5863769-5 (Version None)
Quarter: 2008Q3

REPORT INFORMATION
  Report Type: 
  Country: None (occurrence: None)
  Receive Date: 20080827
  Receipt Date: 20080818
  Transmission Date: 20090109
  Serious: Yes (Other)
  Sender: FDA-Public Use
  Company Number: 2008AP002060

PATIENT
  Sex: Male

DRUGS (5)
  1. METFORMIN HCL [Suspect]
     Indication: TYPE 2 DIABETES MELLITUS
     Dosage: PO
     Route: 048
  2. METFORMIN HCL [Concomitant]
  3. ALPRAZOLAM [Concomitant]
  4. GABAPENTIN [Concomitant]
  5. LEVOFLOXACIN [Concomitant]

REACTIONS (1)
  - PURPURA [None]
